FAERS Safety Report 19201683 (Version 1)
Quarter: 2021Q2

REPORT INFORMATION
  Report Type: Spontaneous
  Country: IT (occurrence: IT)
  Receive Date: 20210430
  Receipt Date: 20210430
  Transmission Date: 20210717
  Serious: Yes (Hospitalization, Other)
  Sender: FDA-Public Use
  Company Number: IT-PFIZER INC-2021462294

PATIENT
  Age: 63 Year
  Sex: Female

DRUGS (3)
  1. MYLOTARG [Suspect]
     Active Substance: GEMTUZUMAB OZOGAMICIN
     Dosage: UNK
  2. DAUNORUBICIN HCL [Suspect]
     Active Substance: DAUNORUBICIN HYDROCHLORIDE
     Dosage: UNK
  3. CYTARABINE. [Suspect]
     Active Substance: CYTARABINE
     Dosage: UNK

REACTIONS (2)
  - COVID-19 pneumonia [Recovered/Resolved]
  - Central nervous system haemorrhage [Recovered/Resolved]
